FAERS Safety Report 26101580 (Version 1)
Quarter: 2025Q4

REPORT INFORMATION
  Report Type: Spontaneous
  Country: PK (occurrence: PK)
  Receive Date: 20251128
  Receipt Date: 20251128
  Transmission Date: 20260118
  Serious: Yes (Life-Threatening, Other)
  Sender: RANBAXY
  Company Number: PK-SUN PHARMACEUTICAL INDUSTRIES INC-2025R1-538581

PATIENT
  Age: 30 Year
  Sex: Male

DRUGS (1)
  1. CLOZAPINE [Interacting]
     Active Substance: CLOZAPINE
     Indication: Schizophrenia
     Dosage: 500 MILLIGRAM, QD
     Route: 065

REACTIONS (5)
  - Drug level increased [Recovering/Resolving]
  - Respiratory failure [Recovering/Resolving]
  - Empyema [Recovering/Resolving]
  - Drug interaction [Unknown]
  - Pleural effusion [Recovering/Resolving]
